FAERS Safety Report 8105995 (Version 2)
Quarter: 2012Q4

REPORT INFORMATION
  Report Type: Spontaneous
  Country: FI (occurrence: None)
  Receive Date: 20110815
  Receipt Date: 20121009
  Transmission Date: 20130627
  Serious: Yes (Other)
  Sender: FDA-Public Use
  Company Number: DSA_47370_2011

PATIENT
  Sex: Female

DRUGS (4)
  1. BUPROPION HYDROCHLORIDE [Suspect]
     Indication: ATTENTION DEFICIT/HYPERACTIVITY DISORDER
     Route: 048
  2. BUPROPION HYDROCHLORIDE [Suspect]
     Indication: PSYCHOMOTOR HYPERACTIVITY
     Route: 048
  3. BUPROPION HYDROCHLORIDE [Suspect]
     Indication: ATTENTION DEFICIT/HYPERACTIVITY DISORDER
     Route: 048
  4. BUPROPION HYDROCHLORIDE [Suspect]
     Indication: PSYCHOMOTOR HYPERACTIVITY
     Route: 048

REACTIONS (7)
  - BLISTER [None]
  - RASH PRURITIC [None]
  - URTICARIA [None]
  - PALPITATIONS [None]
  - DIARRHOEA [None]
  - MALAISE [None]
  - TACHYCARDIA [None]
